FAERS Safety Report 25528919 (Version 1)
Quarter: 2025Q3

REPORT INFORMATION
  Report Type: Other
  Country: US (occurrence: US)
  Receive Date: 20250708
  Receipt Date: 20250708
  Transmission Date: 20251020
  Serious: No
  Sender: TRAVERE THERAPEUTICS
  Company Number: US-TRAVERE-2025TVT00997

PATIENT
  Sex: Male

DRUGS (1)
  1. FILSPARI [Suspect]
     Active Substance: SPARSENTAN
     Indication: IgA nephropathy
     Route: 048
     Dates: start: 20240111

REACTIONS (5)
  - Dizziness postural [Unknown]
  - Oedema peripheral [Recovering/Resolving]
  - Fatigue [None]
  - Urinary retention [Unknown]
  - Urine flow decreased [Unknown]
